FAERS Safety Report 10167964 (Version 1)
Quarter: 2014Q2

REPORT INFORMATION
  Report Type: Spontaneous
  Country: US (occurrence: US)
  Receive Date: 20140512
  Receipt Date: 20140512
  Transmission Date: 20141212
  Serious: Yes (Death)
  Sender: FDA-Public Use
  Company Number: US-GLAXOSMITHKLINE-A1072793A

PATIENT
  Age: 62 Year
  Sex: Male

DRUGS (3)
  1. FLOLAN [Suspect]
     Indication: COR PULMONALE CHRONIC
     Dosage: 23NGKM UNKNOWN
     Route: 065
     Dates: start: 20111011
  2. REVATIO [Concomitant]
  3. WARFARIN [Concomitant]

REACTIONS (1)
  - Death [Fatal]
